FAERS Safety Report 13095171 (Version 2)
Quarter: 2017Q1

REPORT INFORMATION
  Report Type: Report from Study
  Country: JP (occurrence: JP)
  Receive Date: 20170107
  Receipt Date: 20170119
  Transmission Date: 20170428
  Serious: Yes (Death, Life-Threatening, Other)
  Sender: FDA-Public Use
  Company Number: JP-AMGEN-JPNCT2016012761

PATIENT
  Age: 67 Year
  Sex: Male

DRUGS (38)
  1. DARBEPOETIN ALFA [Suspect]
     Active Substance: DARBEPOETIN ALFA
     Dosage: 240 MUG, UNK
     Route: 058
     Dates: start: 20150817
  2. PREDNISOLONE. [Concomitant]
     Active Substance: PREDNISOLONE
     Indication: RHEUMATOID ARTHRITIS
     Dosage: 3 MG, UNK
     Route: 048
  3. PREDNISOLONE. [Concomitant]
     Active Substance: PREDNISOLONE
     Indication: TYPE 2 DIABETES MELLITUS
     Dosage: 3 MG, UNK
     Route: 048
     Dates: end: 20160313
  4. AZUNOL [Concomitant]
     Active Substance: SODIUM GUALENATE
     Indication: STOMATITIS
     Dosage: UNK
     Route: 049
     Dates: start: 20150727, end: 20150817
  5. CEFCAPENE PIVOXIL HYDROCHLORIDE [Concomitant]
     Active Substance: CEFCAPENE PIVOXIL HYDROCHLORIDE
     Dosage: 300 MG, UNK
     Route: 048
     Dates: start: 20160307, end: 20160313
  6. DARBEPOETIN ALFA [Suspect]
     Active Substance: DARBEPOETIN ALFA
     Dosage: 240 MUG, UNK
     Route: 058
     Dates: start: 20150807
  7. PREDONINE [Suspect]
     Active Substance: PREDNISOLONE
     Dosage: 10 MG, UNK
     Route: 048
     Dates: start: 20160314, end: 20160911
  8. TAKEPRON [Concomitant]
     Active Substance: LANSOPRAZOLE
     Dosage: 15 MG, UNK
     Route: 048
  9. PREDONINE [Suspect]
     Active Substance: PREDNISOLONE
     Indication: RHEUMATOID ARTHRITIS
     Dosage: 5 MG, UNK
     Route: 048
     Dates: end: 20160313
  10. THYRADIN S [Concomitant]
     Active Substance: LEVOTHYROXINE SODIUM
     Indication: HYPOTHYROIDISM
     Dosage: 100 MG, UNK
     Route: 048
     Dates: end: 20161101
  11. BAKTAR [Concomitant]
     Active Substance: SULFAMETHOXAZOLE\TRIMETHOPRIM
     Dosage: 1 DF, UNK
     Route: 048
     Dates: start: 20160912, end: 20161101
  12. VALACICLOVIR [Concomitant]
     Active Substance: VALACYCLOVIR HYDROCHLORIDE
     Dosage: 2000 MG, UNK
     Route: 048
     Dates: start: 20160926, end: 20161001
  13. DARBEPOETIN ALFA [Suspect]
     Active Substance: DARBEPOETIN ALFA
     Indication: MYELODYSPLASTIC SYNDROME
     Dosage: 240 MUG, Q2WK
     Route: 058
     Dates: start: 20141227, end: 20150124
  14. DARBEPOETIN ALFA [Suspect]
     Active Substance: DARBEPOETIN ALFA
     Dosage: 240 MUG, UNK
     Route: 058
     Dates: start: 20150515
  15. DARBEPOETIN ALFA [Suspect]
     Active Substance: DARBEPOETIN ALFA
     Dosage: 240 MUG, Q2WK
     Route: 058
     Dates: start: 20151203
  16. GLAKAY [Concomitant]
     Active Substance: MENATETRENONE
     Indication: MYELODYSPLASTIC SYNDROME
     Dosage: 45 MG, UNK
     Route: 048
     Dates: start: 20151102, end: 20161101
  17. XYZAL [Concomitant]
     Active Substance: LEVOCETIRIZINE DIHYDROCHLORIDE
     Dosage: 5 MG, UNK
     Route: 048
     Dates: start: 20161003, end: 20161101
  18. GRAN [Concomitant]
     Active Substance: FILGRASTIM
     Indication: MYELODYSPLASTIC SYNDROME
     Dosage: 75 MUG, UNK
     Route: 058
     Dates: start: 20161008, end: 20161017
  19. MEROPENEM. [Concomitant]
     Active Substance: MEROPENEM
     Dosage: 1.5 G, UNK
     Route: 041
     Dates: start: 20161012, end: 20161102
  20. PREDONINE [Suspect]
     Active Substance: PREDNISOLONE
     Dosage: 15 MG, UNK
     Route: 048
     Dates: start: 20160912, end: 20161025
  21. METHYCOBAL [Concomitant]
     Active Substance: METHYLCOBALAMIN
     Dosage: 1500 MUG, UNK
     Route: 048
     Dates: start: 20151116, end: 20161101
  22. ASPARA POTASSIUM [Concomitant]
     Active Substance: POTASSIUM ASPARTATE
     Dosage: 900 MG, UNK
     Route: 048
     Dates: start: 20161025, end: 20161101
  23. FUNGUARD [Concomitant]
     Active Substance: MICAFUNGIN SODIUM
     Dosage: 150 MG, UNK
     Route: 041
     Dates: start: 20161007, end: 20161102
  24. DARBEPOETIN ALFA [Suspect]
     Active Substance: DARBEPOETIN ALFA
     Dosage: 240 MUG, UNK
     Route: 058
     Dates: start: 20150601
  25. DARBEPOETIN ALFA [Suspect]
     Active Substance: DARBEPOETIN ALFA
     Dosage: 240 MUG, UNK
     Route: 058
     Dates: start: 20150727
  26. BENET [Concomitant]
     Active Substance: RISEDRONATE SODIUM
     Dosage: 17.5 MG, QWK
     Route: 048
     Dates: end: 20161101
  27. URSO [Concomitant]
     Active Substance: URSODIOL
     Dosage: 300 MG, UNK
     Route: 048
     Dates: start: 20160926, end: 20161101
  28. SUINY [Concomitant]
     Active Substance: ANAGLIPTIN
     Indication: TYPE 2 DIABETES MELLITUS
     Dosage: 100 MUG, UNK
     Route: 048
     Dates: start: 20160818, end: 20161101
  29. ITRIZOLE [Concomitant]
     Active Substance: ITRACONAZOLE
     Dosage: 200 MG, UNK
     Route: 048
     Dates: start: 20160912, end: 20161101
  30. MAXIPIME [Concomitant]
     Active Substance: CEFEPIME HYDROCHLORIDE
     Dosage: 2 G, UNK
     Route: 042
     Dates: start: 20161006, end: 20161011
  31. TEICOPLANIN [Concomitant]
     Active Substance: TEICOPLANIN
     Dosage: 800 MG, UNK
     Route: 041
     Dates: start: 20161025, end: 20161102
  32. DARBEPOETIN ALFA [Suspect]
     Active Substance: DARBEPOETIN ALFA
     Dosage: 240 MUG, Q3WK
     Route: 058
     Dates: start: 20150619
  33. PREDNISOLONE. [Concomitant]
     Active Substance: PREDNISOLONE
     Dosage: 3 MG, UNK
     Route: 048
     Dates: start: 20160314, end: 20161025
  34. PRIMOBOLAN-DEPOT [Concomitant]
     Active Substance: METHENOLONE ENANTHATE
     Indication: MYELODYSPLASTIC SYNDROME
     Dosage: 10 MG, UNK
     Route: 048
     Dates: start: 20160215, end: 20161101
  35. CRAVIT [Concomitant]
     Active Substance: LEVOFLOXACIN
     Dosage: 250 MG, UNK
     Route: 048
     Dates: start: 20160314, end: 20160324
  36. DENOSINE [Concomitant]
     Active Substance: GANCICLOVIR
     Dosage: 250 MG, UNK
     Route: 041
     Dates: start: 20161027, end: 20161102
  37. PREDONINE [Suspect]
     Active Substance: PREDNISOLONE
     Dosage: 50 MG, UNK
     Route: 048
     Dates: start: 20161026, end: 20161101
  38. FOLIAMIN [Concomitant]
     Active Substance: FOLIC ACID
     Dosage: 3 DF, UNK
     Route: 048
     Dates: start: 20151116, end: 20161101

REACTIONS (13)
  - Pyrexia [Not Recovered/Not Resolved]
  - Cytomegalovirus infection [Recovered/Resolved]
  - Blood bilirubin increased [Not Recovered/Not Resolved]
  - Liver disorder [Not Recovered/Not Resolved]
  - Acute febrile neutrophilic dermatosis [Recovered/Resolved]
  - Blood lactate dehydrogenase increased [Recovered/Resolved]
  - Stomatitis [Recovered/Resolved]
  - Sepsis [Not Recovered/Not Resolved]
  - C-reactive protein increased [Recovered/Resolved]
  - Cerebral thrombosis [Fatal]
  - Hypokalaemia [Recovered/Resolved]
  - C-reactive protein increased [Not Recovered/Not Resolved]
  - Upper respiratory tract inflammation [Recovered/Resolved]

NARRATIVE: CASE EVENT DATE: 20150317
